FAERS Safety Report 12742883 (Version 2)
Quarter: 2016Q4

REPORT INFORMATION
  Report Type: Spontaneous
  Country: US (occurrence: US)
  Receive Date: 20160914
  Receipt Date: 20161019
  Transmission Date: 20170207
  Serious: Yes (Other)
  Sender: FDA-Public Use
  Company Number: US-SAOL THERAPEUTICS-2016SAO00610

PATIENT
  Age: 26 Year
  Sex: Male

DRUGS (3)
  1. LIORESAL [Suspect]
     Active Substance: BACLOFEN
     Dosage: 733 ?G, \DAY
     Route: 037
  2. LIORESAL [Suspect]
     Active Substance: BACLOFEN
     Indication: MUSCLE SPASTICITY
     Dosage: UNK
     Dates: start: 20100528
  3. LIORESAL [Suspect]
     Active Substance: BACLOFEN
     Indication: CEREBRAL PALSY
     Dosage: 834 ?G, \DAY
     Route: 037

REACTIONS (6)
  - Medical device site erythema [Unknown]
  - Implant site extravasation [Unknown]
  - Discomfort [Unknown]
  - Medical device site pain [Unknown]
  - Pain [Unknown]
  - Hypertonia [Unknown]

NARRATIVE: CASE EVENT DATE: 20160415
